FAERS Safety Report 24108883 (Version 3)
Quarter: 2024Q3

REPORT INFORMATION
  Report Type: Spontaneous
  Country: US (occurrence: US)
  Receive Date: 20240718
  Receipt Date: 20240811
  Transmission Date: 20241017
  Serious: No
  Sender: BRISTOL MYERS SQUIBB
  Company Number: US-BRISTOL-MYERS SQUIBB COMPANY-2024-112688

PATIENT
  Age: 90 Year
  Sex: Male

DRUGS (1)
  1. LENALIDOMIDE [Suspect]
     Active Substance: LENALIDOMIDE
     Indication: Thrombocytopenia
     Route: 048

REACTIONS (4)
  - Fatigue [Unknown]
  - Product storage error [Unknown]
  - Off label use [Unknown]
  - Rash [Not Recovered/Not Resolved]
